FAERS Safety Report 14281581 (Version 2)
Quarter: 2017Q4

REPORT INFORMATION
  Report Type: Spontaneous
  Country: US (occurrence: US)
  Receive Date: 20171213
  Receipt Date: 20171218
  Transmission Date: 20180321
  Serious: Yes (Disabling, Other)
  Sender: FDA-Public Use
  Company Number: US-PFIZER INC-2017532840

PATIENT
  Age: 68 Year
  Sex: Female
  Weight: 97.52 kg

DRUGS (2)
  1. GABAPENTIN. [Suspect]
     Active Substance: GABAPENTIN
     Indication: SEIZURE
     Dosage: 300 MG, 3X/DAY
     Route: 048
  2. VITAMINS /00067501/ [Concomitant]
     Active Substance: VITAMINS

REACTIONS (8)
  - Metabolic disorder [Recovered/Resolved]
  - Dizziness [Recovered/Resolved]
  - Drug intolerance [Unknown]
  - Rash [Recovered/Resolved]
  - Seizure [Recovered/Resolved]
  - Condition aggravated [Unknown]
  - Reaction to excipient [Recovered/Resolved]
  - Disorientation [Recovered/Resolved]
